FAERS Safety Report 13849735 (Version 1)
Quarter: 2017Q3

REPORT INFORMATION
  Report Type: Spontaneous
  Country: US (occurrence: US)
  Receive Date: 20170809
  Receipt Date: 20170809
  Transmission Date: 20171127
  Serious: Yes (Hospitalization, Other)
  Sender: FDA-Public Use
  Company Number: US-ALVOGEN-2017-ALVOGEN-092953

PATIENT
  Sex: Female
  Weight: 48.53 kg

DRUGS (6)
  1. LISINOPRIL. [Suspect]
     Active Substance: LISINOPRIL
     Indication: BLOOD PRESSURE ABNORMAL
     Route: 048
  2. PROAIR HFA [Concomitant]
     Active Substance: ALBUTEROL SULFATE
     Indication: BRONCHITIS CHRONIC
     Route: 055
  3. ASPIRIN. [Concomitant]
     Active Substance: ASPIRIN
     Indication: PRODUCT USED FOR UNKNOWN INDICATION
     Route: 048
     Dates: start: 2009
  4. HYDROCHLOROTHIAZIDE AND LISINOPRIL [Suspect]
     Active Substance: HYDROCHLOROTHIAZIDE\LISINOPRIL
     Indication: BLOOD PRESSURE ABNORMAL
     Dosage: LISINOPRIL WAS 20 MG, HCZT UNKNOWN.
     Route: 048
  5. SYMBICORT [Suspect]
     Active Substance: BUDESONIDE\FORMOTEROL FUMARATE DIHYDRATE
     Indication: CHRONIC OBSTRUCTIVE PULMONARY DISEASE
     Dosage: 160/4.5 MCG
     Route: 055
     Dates: start: 2012
  6. SALBUTAMOL [Concomitant]
     Active Substance: ALBUTEROL
     Indication: BRONCHITIS
     Dosage: 0.083 2.5 MG/3 ML
     Route: 055

REACTIONS (12)
  - Bronchial obstruction [Unknown]
  - Blood pressure normal [Unknown]
  - Cough [Unknown]
  - Drug hypersensitivity [Unknown]
  - Hypotension [Unknown]
  - Dyspnoea [Unknown]
  - Hypertension [Unknown]
  - Gait disturbance [Unknown]
  - Off label use [Unknown]
  - Intentional product misuse [Unknown]
  - Dry throat [Unknown]
  - Irritability [Unknown]

NARRATIVE: CASE EVENT DATE: 2017
